FAERS Safety Report 12490904 (Version 1)
Quarter: 2016Q2

REPORT INFORMATION
  Report Type: Spontaneous
  Country: US (occurrence: US)
  Receive Date: 20160623
  Receipt Date: 20160623
  Transmission Date: 20160815
  Serious: No
  Sender: FDA-Public Use
  Company Number: US-BIOGEN-2016BI00255177

PATIENT
  Sex: Female

DRUGS (1)
  1. TYSABRI [Suspect]
     Active Substance: NATALIZUMAB
     Indication: MULTIPLE SCLEROSIS
     Dates: start: 20080523

REACTIONS (7)
  - Influenza like illness [Unknown]
  - Hypertension [Unknown]
  - Mobility decreased [Unknown]
  - Osteoarthritis [Not Recovered/Not Resolved]
  - Pyrexia [Unknown]
  - Hypoglycaemia [Not Recovered/Not Resolved]
  - Tinnitus [Unknown]
